FAERS Safety Report 11512580 (Version 1)
Quarter: 2015Q3

REPORT INFORMATION
  Report Type: Spontaneous
  Country: US (occurrence: None)
  Receive Date: 20150915
  Receipt Date: 20150915
  Transmission Date: 20151125
  Serious: No
  Sender: FDA-Public Use
  Company Number: None

PATIENT
  Age: 75 Year
  Sex: Female
  Weight: 99.79 kg

DRUGS (17)
  1. FUROSEMIDE. [Concomitant]
     Active Substance: FUROSEMIDE
  2. CVS MAXIMUN STRENGHT COLD + HOT PAIN REIEF LIQUID [Concomitant]
  3. OXYGEN. [Concomitant]
     Active Substance: OXYGEN
  4. ACETAMINOPH [Concomitant]
  5. PURE BAKING SODA [Concomitant]
     Active Substance: SODIUM BICARBONATE
  6. TUMS ANTACID SMOOTHIES [Concomitant]
  7. PROAIR HFA [Concomitant]
     Active Substance: ALBUTEROL SULFATE
  8. COLD + HOT PAIN RELIEF [Concomitant]
  9. ICY HOT MEDICATED NO MESS APPLICATOR [Suspect]
     Active Substance: MENTHOL
     Indication: PAIN IN EXTREMITY
     Dosage: APPLY THIN LAYER TO AFFECTED AREA MASSAGE UNTIL ABSORBED 3 OR 4 TIMES DAILY ON SKIN ON MY LEGS-ANKLES TO KNE
     Route: 061
     Dates: start: 20150831, end: 20150831
  10. POTASSIUM [Concomitant]
     Active Substance: POTASSIUM
  11. ONDANSETRON [Concomitant]
     Active Substance: ONDANSETRON
  12. OLIVE OIL [Concomitant]
     Active Substance: OLIVE OIL
  13. ALPRAZOLAM. [Concomitant]
     Active Substance: ALPRAZOLAM
  14. IPRATROPIUM BROMIDE + ALBUTEROL SULFATE [Concomitant]
     Active Substance: ALBUTEROL SULFATE\IPRATROPIUM BROMIDE
  15. BIOFREEZE-COLD THERAPY PAIN RELIEF CVS [Concomitant]
  16. THEOPHYLINE [Concomitant]
     Active Substance: THEOPHYLLINE ANHYDROUS
  17. HYDROCODON [Concomitant]
     Active Substance: HYDROCODONE

REACTIONS (1)
  - Application site pain [None]

NARRATIVE: CASE EVENT DATE: 2015
